FAERS Safety Report 19257304 (Version 4)
Quarter: 2021Q4

REPORT INFORMATION
  Report Type: Other
  Country: CN (occurrence: CN)
  Receive Date: 20210514
  Receipt Date: 20211025
  Transmission Date: 20220303
  Serious: Yes (Other)
  Sender: FDA-Public Use
  Company Number: CN-ROCHE-2232730

PATIENT
  Age: 68 Year
  Sex: Female
  Weight: 50 kg

DRUGS (2)
  1. AVASTIN [Suspect]
     Active Substance: BEVACIZUMAB
     Indication: Non-small cell lung cancer
     Route: 041
     Dates: start: 20161021, end: 20210326
  2. AVASTIN [Suspect]
     Active Substance: BEVACIZUMAB
     Route: 041

REACTIONS (11)
  - Nasopharyngitis [Unknown]
  - Cardiac discomfort [Unknown]
  - Proteinuria [Recovered/Resolved]
  - Pulmonary fibrosis [Unknown]
  - Dyspnoea [Unknown]
  - Tracheitis [Unknown]
  - Movement disorder [Unknown]
  - Pneumonia [Unknown]
  - Tachypnoea [Unknown]
  - Dyspnoea [Unknown]
  - Respiratory disorder [Unknown]

NARRATIVE: CASE EVENT DATE: 20190325
